FAERS Safety Report 10207044 (Version 1)
Quarter: 2014Q2

REPORT INFORMATION
  Report Type: Spontaneous
  Country: US (occurrence: None)
  Receive Date: 20140527
  Receipt Date: 20140527
  Transmission Date: 20141212
  Serious: Yes (Hospitalization)
  Sender: FDA-Public Use
  Company Number: None

PATIENT
  Age: 79 Year
  Sex: Female

DRUGS (1)
  1. LORAZEPAM [Suspect]
     Indication: ANXIETY
     Route: 042
     Dates: end: 20120624

REACTIONS (11)
  - Aphagia [None]
  - Cerebral haemorrhage [None]
  - Drug hypersensitivity [None]
  - Aggression [None]
  - Aggression [None]
  - Abnormal behaviour [None]
  - Human bite [None]
  - Screaming [None]
  - Hyperhidrosis [None]
  - Chest pain [None]
  - Confusional state [None]
